FAERS Safety Report 24761435 (Version 8)
Quarter: 2025Q2

REPORT INFORMATION
  Report Type: Report from Study
  Country: IL (occurrence: IL)
  Receive Date: 20241220
  Receipt Date: 20250618
  Transmission Date: 20250716
  Serious: Yes (Other)
  Sender: TEVA
  Company Number: IL-TEVA-VS-3276964

PATIENT
  Age: 60 Year
  Sex: Male

DRUGS (17)
  1. AUSTEDO [Suspect]
     Active Substance: DEUTETRABENAZINE
     Indication: Tardive dyskinesia
     Route: 065
     Dates: start: 20241111, end: 2024
  2. AUSTEDO [Suspect]
     Active Substance: DEUTETRABENAZINE
     Indication: Tardive dyskinesia
     Route: 065
     Dates: start: 2024
  3. AUSTEDO [Suspect]
     Active Substance: DEUTETRABENAZINE
     Indication: Tardive dyskinesia
     Route: 065
  4. AUSTEDO [Suspect]
     Active Substance: DEUTETRABENAZINE
     Indication: Tardive dyskinesia
     Dosage: 15 MG IN THE MORNING AND ANOTHER 9 MG IN THE EVENING
     Route: 065
  5. AUSTEDO [Suspect]
     Active Substance: DEUTETRABENAZINE
     Indication: Tardive dyskinesia
     Route: 065
  6. CINACALCET [Concomitant]
     Active Substance: CINACALCET
     Indication: Product used for unknown indication
     Route: 065
  7. FEXOFENADINE [Concomitant]
     Active Substance: FEXOFENADINE HYDROCHLORIDE
     Indication: Product used for unknown indication
     Route: 065
  8. Torva [Concomitant]
     Indication: Product used for unknown indication
     Route: 065
  9. INSULIN NOS [Concomitant]
     Active Substance: INSULIN NOS
     Indication: Product used for unknown indication
     Route: 065
  10. ASPIRIN [Concomitant]
     Active Substance: ASPIRIN
     Indication: Product used for unknown indication
     Route: 065
  11. Betacorten [Concomitant]
     Indication: Product used for unknown indication
     Route: 065
  12. FEXOFENADINE [Concomitant]
     Active Substance: FEXOFENADINE HYDROCHLORIDE
     Indication: Product used for unknown indication
     Route: 065
  13. DAPAGLIFLOZIN [Concomitant]
     Active Substance: DAPAGLIFLOZIN
     Indication: Product used for unknown indication
     Route: 065
  14. OMEPRAZOLE [Concomitant]
     Active Substance: OMEPRAZOLE
     Indication: Product used for unknown indication
     Route: 065
  15. ARIPIPRAZOLE [Concomitant]
     Active Substance: ARIPIPRAZOLE
     Indication: Product used for unknown indication
     Route: 065
  16. Candor [Concomitant]
     Indication: Product used for unknown indication
     Route: 065
  17. CIPRALEX [Concomitant]
     Active Substance: ESCITALOPRAM OXALATE
     Indication: Product used for unknown indication
     Route: 065

REACTIONS (15)
  - Psychotic disorder [Recovering/Resolving]
  - Product use issue [Unknown]
  - Patient dissatisfaction with treatment [Unknown]
  - Crying [Unknown]
  - Mood altered [Unknown]
  - Depression [Recovering/Resolving]
  - Suicide attempt [Unknown]
  - Cognitive disorder [Unknown]
  - Aggression [Unknown]
  - Mental disorder [Unknown]
  - Tardive dyskinesia [Unknown]
  - Dysphagia [Unknown]
  - Irritability [Unknown]
  - Aggression [Unknown]
  - Cough [Unknown]

NARRATIVE: CASE EVENT DATE: 20240101
